FAERS Safety Report 17104195 (Version 1)
Quarter: 2019Q4

REPORT INFORMATION
  Report Type: Spontaneous
  Country: US (occurrence: US)
  Receive Date: 20191203
  Receipt Date: 20191203
  Transmission Date: 20200122
  Serious: No
  Sender: FDA-Public Use
  Company Number: US-UCBSA-2017050063

PATIENT
  Sex: Male

DRUGS (1)
  1. CIMZIA [Suspect]
     Active Substance: CERTOLIZUMAB PEGOL
     Indication: RHEUMATOID ARTHRITIS
     Dosage: UNKNOWN DOSE
     Dates: start: 201610, end: 201612

REACTIONS (5)
  - Tremor [Unknown]
  - Arthralgia [Unknown]
  - Nausea [Unknown]
  - Chills [Unknown]
  - Rash [Unknown]

NARRATIVE: CASE EVENT DATE: 2016
